FAERS Safety Report 5714542-X (Version None)
Quarter: 2008Q2

REPORT INFORMATION
  Report Type: 
  Country: None (occurrence: None)
  Receive Date: 20080421
  Receipt Date: 20080409
  Transmission Date: 20081010
  Serious: Yes (Life-Threatening, Hospitalization)
  Sender: FDA-Public Use
  Company Number: 2008AL002183

PATIENT
  Age: 28 Year
  Sex: Female

DRUGS (3)
  1. FLUOXETINE [Suspect]
     Indication: EATING DISORDER
     Dosage: 60 MG; QD;
  2. HYPERICUM [Concomitant]
  3. ELETRIPTAN [Concomitant]

REACTIONS (13)
  - BODY TEMPERATURE DECREASED [None]
  - CONFUSIONAL STATE [None]
  - GRAND MAL CONVULSION [None]
  - LOSS OF CONSCIOUSNESS [None]
  - MENTAL IMPAIRMENT [None]
  - MIGRAINE [None]
  - PHONOPHOBIA [None]
  - PHOTOPHOBIA [None]
  - RENAL FAILURE ACUTE [None]
  - RHABDOMYOLYSIS [None]
  - SEROTONIN SYNDROME [None]
  - TONGUE BITING [None]
  - TREMOR [None]
